FAERS Safety Report 20951903 (Version 6)
Quarter: 2022Q4

REPORT INFORMATION
  Report Type: Spontaneous
  Country: PL (occurrence: PL)
  Receive Date: 20220613
  Receipt Date: 20221201
  Transmission Date: 20230113
  Serious: Yes (Hospitalization, Other)
  Sender: FDA-Public Use
  Company Number: PL-NOVARTISPH-NVSC2022PL130799

PATIENT
  Age: 60 Year
  Sex: Male

DRUGS (12)
  1. PACLITAXEL [Suspect]
     Active Substance: PACLITAXEL
     Indication: Squamous cell carcinoma of lung
     Dosage: UNK (FIRST CYCLE)
     Route: 065
     Dates: start: 20210211, end: 2021
  2. PACLITAXEL [Suspect]
     Active Substance: PACLITAXEL
     Dosage: UNK (SECOND CYCLE)
     Route: 065
     Dates: start: 20210308, end: 2021
  3. PACLITAXEL [Suspect]
     Active Substance: PACLITAXEL
     Dosage: UNK 3RD COURSE
     Route: 065
     Dates: start: 2021, end: 20210312
  4. PACLITAXEL [Suspect]
     Active Substance: PACLITAXEL
     Dosage: THE LAST COURSE WITH CHEMOTHERAPY
     Route: 065
     Dates: start: 20210716, end: 20210716
  5. CARBOPLATIN [Suspect]
     Active Substance: CARBOPLATIN
     Indication: Squamous cell carcinoma of lung
     Dosage: UNK (FIRST CYCLE)
     Route: 065
     Dates: start: 20210211, end: 2021
  6. CARBOPLATIN [Suspect]
     Active Substance: CARBOPLATIN
     Dosage: UNK (SECOND CYCLE)
     Route: 065
     Dates: start: 20210308, end: 2021
  7. CARBOPLATIN [Suspect]
     Active Substance: CARBOPLATIN
     Dosage: UNK 3RD COURSE
     Route: 065
     Dates: start: 2021, end: 20210312
  8. CARBOPLATIN [Suspect]
     Active Substance: CARBOPLATIN
     Dosage: THE LAST COURSE WITH CHEMOTHERAPY
     Route: 065
     Dates: start: 20210716, end: 20210716
  9. PEMBROLIZUMAB [Suspect]
     Active Substance: PEMBROLIZUMAB
     Indication: Squamous cell carcinoma of lung
     Dosage: UNK (FIRST CYCLE)
     Route: 065
     Dates: start: 20210211, end: 2021
  10. PEMBROLIZUMAB [Suspect]
     Active Substance: PEMBROLIZUMAB
     Dosage: UNK (SECOND CYCLE)
     Route: 065
     Dates: start: 20210308, end: 2021
  11. PEMBROLIZUMAB [Suspect]
     Active Substance: PEMBROLIZUMAB
     Dosage: UNK 3RD COURSE
     Route: 065
     Dates: start: 2021, end: 20210312
  12. PEMBROLIZUMAB [Suspect]
     Active Substance: PEMBROLIZUMAB
     Dosage: THE 4TH COURSE OF TREATMENT
     Route: 065
     Dates: start: 20210716

REACTIONS (18)
  - Facial asymmetry [Recovered/Resolved]
  - Speech disorder [Recovered/Resolved]
  - Muscular weakness [Recovered/Resolved]
  - Ischaemic stroke [Recovered/Resolved]
  - Monoparesis [Recovering/Resolving]
  - Hypophagia [Recovering/Resolving]
  - Psychomotor hyperactivity [Recovering/Resolving]
  - General physical health deterioration [Recovering/Resolving]
  - Dehydration [Recovering/Resolving]
  - Asthenia [Recovering/Resolving]
  - COVID-19 pneumonia [Recovering/Resolving]
  - Normocytic anaemia [Recovering/Resolving]
  - Lymphopenia [Recovering/Resolving]
  - Thrombocytopenia [Recovering/Resolving]
  - Neutropenia [Recovering/Resolving]
  - Atelectasis [Unknown]
  - Alanine aminotransferase increased [Unknown]
  - Leukopenia [Unknown]

NARRATIVE: CASE EVENT DATE: 20210101
